FAERS Safety Report 9551340 (Version 1)
Quarter: 2013Q3

REPORT INFORMATION
  Report Type: Spontaneous
  Country: US (occurrence: None)
  Receive Date: 20130724
  Receipt Date: 20130724
  Transmission Date: 20140515
  Serious: Yes (Other)
  Sender: FDA-Public Use
  Company Number: PHEH2013US008971

PATIENT
  Age: 70 Year
  Sex: Female

DRUGS (2)
  1. AFINITOR [Suspect]
     Indication: BREAST CANCER
     Route: 048
  2. EXEMESTANE [Suspect]
     Indication: BREAST CANCER

REACTIONS (4)
  - Breast cancer [None]
  - Malignant neoplasm progression [None]
  - Metastases to eye [None]
  - Exophthalmos [None]
